FAERS Safety Report 12100163 (Version 3)
Quarter: 2016Q1

REPORT INFORMATION
  Report Type: Spontaneous
  Country: JP (occurrence: JP)
  Receive Date: 20160222
  Receipt Date: 20160308
  Transmission Date: 20160526
  Serious: Yes (Hospitalization, Other)
  Sender: FDA-Public Use
  Company Number: JP-PFIZER INC-2016006808

PATIENT
  Age: 60 Year
  Sex: Female

DRUGS (11)
  1. IRINOTECAN [Suspect]
     Active Substance: IRINOTECAN
     Dosage: 200 MG, UNK
     Route: 041
     Dates: start: 20151202
  2. LYRICA [Suspect]
     Active Substance: PREGABALIN
     Dosage: 25 MG, 4X/DAY
     Route: 048
  3. LYRICA [Suspect]
     Active Substance: PREGABALIN
     Dosage: 1 CAP MORNING, 1 CAP NOON, 2 CAP BEFORE BEDTIME
     Route: 048
  4. LOXONIN [Concomitant]
     Active Substance: LOXOPROFEN SODIUM
     Indication: PAIN
     Route: 048
  5. LEVOFOLINATO [Concomitant]
     Indication: CHEMOTHERAPY
     Dosage: UNK
     Route: 041
     Dates: start: 20150928
  6. LYRICA [Suspect]
     Active Substance: PREGABALIN
     Indication: NEURALGIA
     Dosage: 50 MG, 2X/DAY
     Route: 048
     Dates: start: 20151204
  7. IRINOTECAN [Suspect]
     Active Substance: IRINOTECAN
     Indication: CHEMOTHERAPY
     Dosage: 150 MG, UNK
     Route: 041
     Dates: start: 20150928
  8. LYRICA [Suspect]
     Active Substance: PREGABALIN
     Indication: NEUROPATHY PERIPHERAL
     Dosage: 25 MG, 2X/DAY
     Route: 048
     Dates: start: 20151119, end: 20151203
  9. FLUOROURACIL. [Concomitant]
     Active Substance: FLUOROURACIL
     Indication: CHEMOTHERAPY
     Dosage: UNK
     Route: 041
     Dates: start: 20150928
  10. TRAMCET [Concomitant]
     Active Substance: ACETAMINOPHEN\TRAMADOL
     Indication: PAIN
     Dosage: 1 TABLET, 4X/DAY
     Route: 048
     Dates: start: 20151028
  11. OXALIPLATIN. [Concomitant]
     Active Substance: OXALIPLATIN
     Indication: CHEMOTHERAPY
     Dosage: UNK
     Route: 041
     Dates: start: 20150928

REACTIONS (7)
  - Intentional product misuse [Recovered/Resolved]
  - Disease recurrence [Recovering/Resolving]
  - Drug effect incomplete [Unknown]
  - Somnolence [Recovered/Resolved]
  - Diarrhoea [Recovering/Resolving]
  - Feeling abnormal [Recovered/Resolved]
  - Dehydration [Unknown]

NARRATIVE: CASE EVENT DATE: 20151215
